FAERS Safety Report 7484256-7 (Version None)
Quarter: 2011Q2

REPORT INFORMATION
  Report Type: 
  Country: None (occurrence: None)
  Receive Date: 20110517
  Receipt Date: 20100927
  Transmission Date: 20111010
  Serious: Yes (Other)
  Sender: FDA-Public Use
  Company Number: US-BAYER-201037610NA

PATIENT
  Sex: Female

DRUGS (3)
  1. YASMIN [Suspect]
     Indication: ACNE
  2. DROSPIRENONE AND ETHINYL ESTRADIOL [Suspect]
     Indication: ACNE
  3. YAZ [Suspect]
     Indication: ACNE

REACTIONS (14)
  - CHOLECYSTITIS CHRONIC [None]
  - BILIARY COLIC [None]
  - GALLBLADDER POLYP [None]
  - ABDOMINAL PAIN UPPER [None]
  - BRAIN MASS [None]
  - MIGRAINE [None]
  - ANXIETY [None]
  - PALPITATIONS [None]
  - EMOTIONAL DISTRESS [None]
  - DYSPNOEA [None]
  - GASTROOESOPHAGEAL REFLUX DISEASE [None]
  - AMNESIA [None]
  - BILIARY DYSKINESIA [None]
  - INSOMNIA [None]
